FAERS Safety Report 13459527 (Version 1)
Quarter: 2017Q2

REPORT INFORMATION
  Report Type: Spontaneous
  Country: GB (occurrence: GB)
  Receive Date: 20170419
  Receipt Date: 20170419
  Transmission Date: 20170830
  Serious: Yes (Death, Life-Threatening, Other)
  Sender: FDA-Public Use
  Company Number: GB-INTERNATIONAL MEDICATION SYSTEMS, LIMITED-1065548

PATIENT
  Sex: Female

DRUGS (3)
  1. MORPHINE [Suspect]
     Active Substance: MORPHINE
  2. DIAMORPHINE [Concomitant]
     Active Substance: DIAMORPHINE
  3. HYOSCINE [Suspect]
     Active Substance: SCOPOLAMINE

REACTIONS (4)
  - Tachycardia [Unknown]
  - Death [Fatal]
  - Pallor [Unknown]
  - Overdose [Fatal]

NARRATIVE: CASE EVENT DATE: 20170309
